FAERS Safety Report 22255767 (Version 1)
Quarter: 2023Q2

REPORT INFORMATION
  Report Type: Spontaneous
  Country: CA (occurrence: CA)
  Receive Date: 20230426
  Receipt Date: 20230426
  Transmission Date: 20230721
  Serious: Yes (Other)
  Sender: FDA-Public Use
  Company Number: CA-BAYER-2023A046730

PATIENT
  Age: 39 Year
  Sex: Female

DRUGS (4)
  1. YAZ [Suspect]
     Active Substance: DROSPIRENONE\ETHINYL ESTRADIOL
     Dosage: 1 DF, QD
     Dates: start: 20100729
  2. ETHINYL ESTRADIOL\NORGESTIMATE [Concomitant]
     Active Substance: ETHINYL ESTRADIOL\NORGESTIMATE
     Dosage: 1 DF, QD
     Route: 048
  3. ALESSE 28 [Concomitant]
     Active Substance: ETHINYL ESTRADIOL\LEVONORGESTREL
     Dosage: 1 DF, QD
  4. FUCIDIN (FUSIDIC ACID) [Concomitant]
     Active Substance: FUSIDIC ACID

REACTIONS (15)
  - Deep vein thrombosis [None]
  - Pulmonary embolism [None]
  - Libido decreased [None]
  - Erythema nodosum [None]
  - Nausea [None]
  - Paraesthesia [None]
  - Hemihypoaesthesia [None]
  - Aphasia [None]
  - Presyncope [None]
  - Constipation [None]
  - Nausea [None]
  - Decreased appetite [None]
  - Arthralgia [None]
  - Back pain [None]
  - Abdominal pain [None]

NARRATIVE: CASE EVENT DATE: 20110311
